FAERS Safety Report 5284458-4 (Version None)
Quarter: 2007Q1

REPORT INFORMATION
  Report Type: 
  Country: None (occurrence: None)
  Receive Date: 20061227
  Receipt Date: 20061107
  Transmission Date: 20070707
  Serious: Yes (Hospitalization)
  Sender: FDA-Public Use
  Company Number: 13568159

PATIENT
  Sex: Female

DRUGS (3)
  1. EMSAM [Suspect]
  2. STALEVO 100 [Suspect]
  3. PARCOPA [Suspect]

REACTIONS (1)
  - HYPERTENSION [None]
